FAERS Safety Report 13861796 (Version 3)
Quarter: 2017Q3

REPORT INFORMATION
  Report Type: Spontaneous
  Country: US (occurrence: US)
  Receive Date: 20170811
  Receipt Date: 20170918
  Transmission Date: 20171127
  Serious: Yes (Other)
  Sender: FDA-Public Use
  Company Number: US-GLAXOSMITHKLINE-US2017GSK124570

PATIENT
  Age: 52 Year
  Sex: Female
  Weight: 89.8 kg

DRUGS (3)
  1. TAZORAC [Concomitant]
     Active Substance: TAZAROTENE
  2. BENLYSTA [Suspect]
     Active Substance: BELIMUMAB
     Indication: PRODUCT USED FOR UNKNOWN INDICATION
     Dosage: 880 MG, UNK
     Dates: start: 20150903
  3. GABAPENTIN. [Concomitant]
     Active Substance: GABAPENTIN

REACTIONS (9)
  - Hypotension [Recovered/Resolved]
  - Syncope [Recovered/Resolved]
  - Infusion related reaction [Recovered/Resolved]
  - Face oedema [Recovered/Resolved]
  - Dizziness [Recovered/Resolved]
  - Nausea [Recovered/Resolved]
  - Systemic lupus erythematosus [Unknown]
  - Laryngeal oedema [Recovered/Resolved]
  - Vomiting [Recovered/Resolved]

NARRATIVE: CASE EVENT DATE: 20150903
